FAERS Safety Report 15371719 (Version 1)
Quarter: 2018Q3

REPORT INFORMATION
  Report Type: Spontaneous
  Country: FR (occurrence: FR)
  Receive Date: 20180911
  Receipt Date: 20180911
  Transmission Date: 20181010
  Serious: Yes (Hospitalization)
  Sender: FDA-Public Use
  Company Number: FR-TEVA-2018-FR-953709

PATIENT
  Age: 91 Year
  Sex: Female

DRUGS (5)
  1. FLAGYL [Suspect]
     Active Substance: METRONIDAZOLE\METRONIDAZOLE HYDROCHLORIDE
     Indication: DIVERTICULITIS
     Dosage: 1000 MILLIGRAM DAILY;
     Route: 048
     Dates: start: 20180730, end: 20180808
  2. BISOPROLOL (FUMARATE DE) [Suspect]
     Active Substance: BISOPROLOL FUMARATE
     Indication: HYPERTENSIVE HEART DISEASE
     Dosage: 1.25 MILLIGRAM DAILY;
     Route: 048
  3. ECONAZOLE [Suspect]
     Active Substance: ECONAZOLE
     Indication: FUNGAL INFECTION
     Dosage: 1 DOSAGE FORMS DAILY;
     Route: 061
     Dates: start: 201807, end: 20180805
  4. CEFTRIAXONE BASE [Suspect]
     Active Substance: CEFTRIAXONE
     Indication: DIVERTICULITIS
     Dosage: 1 GRAM DAILY;
     Route: 042
     Dates: start: 20180730, end: 20180802
  5. ALPRAZOLAM. [Suspect]
     Active Substance: ALPRAZOLAM
     Indication: ANXIETY
     Dosage: .25 MILLIGRAM DAILY;
     Route: 048

REACTIONS (1)
  - Rash pruritic [Not Recovered/Not Resolved]

NARRATIVE: CASE EVENT DATE: 20180802
